FAERS Safety Report 6264612-5 (Version None)
Quarter: 2009Q3

REPORT INFORMATION
  Report Type: 
  Country: None (occurrence: None)
  Receive Date: 20090710
  Receipt Date: 20090706
  Transmission Date: 20100115
  Serious: Yes (Life-Threatening)
  Sender: FDA-Public Use
  Company Number: AU-ASTRAZENECA-2009SE04030

PATIENT
  Age: 30854 Day
  Sex: Female

DRUGS (10)
  1. PROPOFOL [Suspect]
     Indication: PARAESTHESIA
     Route: 042
  2. SUCCINYLCHOLINE CHLORIDE [Suspect]
     Indication: PARAESTHESIA
     Dates: start: 20080418, end: 20080418
  3. DILTIAZEM HYDROCHLORIDE [Concomitant]
  4. ESOMEPRAZOLE MAGNESIUM TRIHYDRATE [Concomitant]
  5. MIRTAZAPINE [Concomitant]
  6. OXAZEPAM [Concomitant]
  7. PROMETHAZINE HCL [Concomitant]
  8. QUETIAPINE FUMARATE [Concomitant]
  9. SIMVASTATIN [Concomitant]
  10. ZOPICLONE [Concomitant]

REACTIONS (4)
  - HYPOTENSION [None]
  - OXYGEN SATURATION DECREASED [None]
  - PULSE ABSENT [None]
  - UNRESPONSIVE TO STIMULI [None]
